FAERS Safety Report 15457010 (Version 2)
Quarter: 2018Q4

REPORT INFORMATION
  Report Type: Report from Study
  Country: US (occurrence: US)
  Receive Date: 20181002
  Receipt Date: 20181231
  Transmission Date: 20190204
  Serious: Yes (Hospitalization)
  Sender: FDA-Public Use
  Company Number: US-ACTELION-A-US2018-179517

PATIENT
  Age: 59 Year
  Sex: Female
  Weight: 79.37 kg

DRUGS (7)
  1. TOPAMAX [Concomitant]
     Active Substance: TOPIRAMATE
     Dosage: UNK, QD
     Dates: start: 20181217
  2. TOPAMAX [Concomitant]
     Active Substance: TOPIRAMATE
     Dosage: UNK, BID
     Dates: end: 20181217
  3. VANCOMYCIN [Concomitant]
     Active Substance: VANCOMYCIN
  4. FLAGYL [Suspect]
     Active Substance: METRONIDAZOLE\METRONIDAZOLE HYDROCHLORIDE
     Indication: PRODUCT USED FOR UNKNOWN INDICATION
     Route: 065
  5. TRACLEER [Suspect]
     Active Substance: BOSENTAN
     Indication: PULMONARY ARTERIAL HYPERTENSION
     Dosage: 125 MG, BID
     Route: 048
  6. ADCIRCA [Concomitant]
     Active Substance: TADALAFIL
  7. DILTIAZEM. [Concomitant]
     Active Substance: DILTIAZEM

REACTIONS (7)
  - Peripheral swelling [Unknown]
  - Generalised erythema [Unknown]
  - Dehydration [Unknown]
  - Malaise [Unknown]
  - Rash pruritic [Unknown]
  - Urticaria [Unknown]
  - Oropharyngeal pain [Unknown]
